FAERS Safety Report 20661680 (Version 1)
Quarter: 2022Q2

REPORT INFORMATION
  Report Type: Spontaneous
  Country: GB (occurrence: GB)
  Receive Date: 20220401
  Receipt Date: 20220401
  Transmission Date: 20220721
  Serious: Yes (Other)
  Sender: FDA-Public Use
  Company Number: GB-CELLTRION INC.-2022GB001685

PATIENT

DRUGS (1)
  1. INFLIXIMAB [Suspect]
     Active Substance: INFLIXIMAB
     Indication: Colitis ulcerative
     Dosage: 120 MG EOW
     Route: 058

REACTIONS (3)
  - Dementia [Not Recovered/Not Resolved]
  - Injection site pain [Unknown]
  - Circumstance or information capable of leading to medication error [Not Recovered/Not Resolved]
